FAERS Safety Report 12862009 (Version 1)
Quarter: 2016Q4

REPORT INFORMATION
  Report Type: Spontaneous
  Country: VE (occurrence: VE)
  Receive Date: 20161019
  Receipt Date: 20161019
  Transmission Date: 20170207
  Serious: Yes (Other)
  Sender: FDA-Public Use
  Company Number: PHHY2016VE141410

PATIENT
  Sex: Female

DRUGS (4)
  1. BERODUAL [Concomitant]
     Active Substance: FENOTEROL HYDROBROMIDE\IPRATROPIUM BROMIDE
     Indication: CHRONIC OBSTRUCTIVE PULMONARY DISEASE
     Dosage: 0,25MG OR 0,50MG (0.75MG OR 0.50 MG, QD)
     Route: 065
     Dates: start: 2012
  2. MIFLONIDE [Suspect]
     Active Substance: BUDESONIDE
     Indication: CHRONIC OBSTRUCTIVE PULMONARY DISEASE
     Dosage: 800 MG, QD
     Route: 048
  3. FORADIL [Suspect]
     Active Substance: FORMOTEROL FUMARATE
     Indication: CHRONIC OBSTRUCTIVE PULMONARY DISEASE
     Dosage: 24 MG, QD
     Route: 048
  4. ALOVENT//OLOPATADINE HYDROCHLORIDE [Concomitant]
     Indication: CHRONIC OBSTRUCTIVE PULMONARY DISEASE
     Dosage: 0,25MG OR 0,50MG (0.75MG OR 0.50 MG, QD)
     Route: 065
     Dates: start: 2012

REACTIONS (3)
  - Dry throat [Unknown]
  - Dyspnoea [Unknown]
  - Drug dependence [Unknown]
